FAERS Safety Report 4721547-4 (Version None)
Quarter: 2005Q3

REPORT INFORMATION
  Report Type: 
  Country: None (occurrence: None)
  Receive Date: 20050721
  Receipt Date: 20041116
  Transmission Date: 20060218
  Serious: Yes (Hospitalization, Other)
  Sender: FDA-Public Use
  Company Number: US-BRISTOL-MYERS SQUIBB COMPANY-12766788

PATIENT
  Sex: Female

DRUGS (1)
  1. COUMADIN [Suspect]
     Indication: PROPHYLAXIS
     Dates: start: 20000101, end: 20020501

REACTIONS (2)
  - INTRACARDIAC THROMBUS [None]
  - PULMONARY THROMBOSIS [None]
